FAERS Safety Report 4314435-9 (Version None)
Quarter: 2004Q1

REPORT INFORMATION
  Report Type: 
  Country: None (occurrence: None)
  Receive Date: 20040309
  Receipt Date: 20040226
  Transmission Date: 20041129
  Serious: Yes (Other)
  Sender: FDA-Public Use
  Company Number: JP-BRISTOL-MYERS SQUIBB COMPANY-12524781

PATIENT
  Age: 61 Year
  Sex: Female
  Weight: 37 kg

DRUGS (3)
  1. SINEMET [Suspect]
     Route: 048
  2. CABERGOLINE [Concomitant]
  3. SELEGILINE HCL [Concomitant]

REACTIONS (5)
  - CACHEXIA [None]
  - MUSCLE RIGIDITY [None]
  - NUCHAL RIGIDITY [None]
  - SPEECH DISORDER [None]
  - UP AND DOWN PHENOMENON [None]
